FAERS Safety Report 20909692 (Version 2)
Quarter: 2022Q3

REPORT INFORMATION
  Report Type: Spontaneous
  Country: US (occurrence: US)
  Receive Date: 20220603
  Receipt Date: 20220817
  Transmission Date: 20221027
  Serious: Yes (Other)
  Sender: FDA-Public Use
  Company Number: US-009507513-2205USA008748

PATIENT
  Sex: Male
  Weight: 93.878 kg

DRUGS (2)
  1. TICE BCG [Suspect]
     Active Substance: BACILLUS CALMETTE-GUERIN SUBSTRAIN TICE LIVE ANTIGEN
     Indication: Bladder transitional cell carcinoma
     Dosage: UNK; PRE-SURGERY
     Route: 043
     Dates: start: 2017
  2. TICE BCG [Suspect]
     Active Substance: BACILLUS CALMETTE-GUERIN SUBSTRAIN TICE LIVE ANTIGEN
     Dosage: UNK, 1/WEEK; SECOND TIME; 6 TREATMENTS
     Route: 043
     Dates: start: 2018, end: 2018

REACTIONS (9)
  - BCG related cystitis [Recovered/Resolved]
  - Nephrectomy [Unknown]
  - Anxiety [Unknown]
  - Headache [Recovered/Resolved]
  - Blood pressure abnormal [Unknown]
  - Hypertension [Unknown]
  - Vision blurred [Unknown]
  - Dehydration [Unknown]
  - Blood pressure increased [Unknown]

NARRATIVE: CASE EVENT DATE: 20180101
